FAERS Safety Report 9685554 (Version 1)
Quarter: 2013Q4

REPORT INFORMATION
  Report Type: Spontaneous
  Country: IT (occurrence: IT)
  Receive Date: 20131113
  Receipt Date: 20131113
  Transmission Date: 20140711
  Serious: Yes (Other)
  Sender: FDA-Public Use
  Company Number: IT-009507513-1311ITA004761

PATIENT
  Age: 55 Year
  Sex: Male
  Weight: 71 kg

DRUGS (2)
  1. RIBAVIRIN [Suspect]
     Indication: CHRONIC HEPATITIS C
     Dosage: DOSE:1000MG,QD
     Route: 048
     Dates: start: 20130531, end: 20130826
  2. TELAPREVIR [Suspect]
     Indication: CHRONIC HEPATITIS C
     Dosage: DOSE:2250,QD
     Route: 048
     Dates: start: 20130719, end: 20130826

REACTIONS (3)
  - Paraesthesia [Recovering/Resolving]
  - Rash [Recovering/Resolving]
  - Erythema [Recovering/Resolving]
